FAERS Safety Report 9908665 (Version 1)
Quarter: 2014Q1

REPORT INFORMATION
  Report Type: Spontaneous
  Country: US (occurrence: None)
  Receive Date: 20140212
  Receipt Date: 20140212
  Transmission Date: 20141002
  Serious: Yes (Other)
  Sender: FDA-Public Use
  Company Number: None

PATIENT
  Age: 66 Year
  Sex: Female

DRUGS (1)
  1. ADCIRCA [Suspect]
     Route: 048

REACTIONS (3)
  - Palpitations [None]
  - Condition aggravated [None]
  - Dyspnoea [None]
